FAERS Safety Report 8544186 (Version 3)
Quarter: 2013Q3

REPORT INFORMATION
  Report Type: Spontaneous
  Country: US (occurrence: US)
  Receive Date: 20120503
  Receipt Date: 20130813
  Transmission Date: 20140515
  Serious: Yes (Hospitalization, Other)
  Sender: FDA-Public Use
  Company Number: US-BAYER-2012-042005

PATIENT
  Age: 47 Year
  Sex: Female

DRUGS (14)
  1. YAZ [Suspect]
     Indication: CONTRACEPTION
     Dosage: UNK
     Dates: start: 20100316, end: 20100330
  2. YAZ [Suspect]
     Indication: DYSMENORRHOEA
  3. YAZ [Suspect]
     Indication: MENORRHAGIA
  4. LASIX [FUROSEMIDE] [Concomitant]
     Dosage: 40 MG DAILY, UNK
     Route: 048
  5. PULMICORT TURBOHALER [Concomitant]
     Dosage: 90 MCG/INH,UNK, BID
  6. POTASSIUM CHLORIDE [Concomitant]
     Dosage: 20 MEQ, BID
     Route: 048
  7. ASTELIN [AZELASTINE HYDROCHLORIDE] [Concomitant]
     Dosage: 2 SPRAYS EACH NOSTRIL 2 TO 3 TIMES DAILYUNK, UNK
     Route: 045
  8. FERROUS SULFATE [Concomitant]
     Dosage: 325 MG, BID
  9. CIPROFLOXACIN [Concomitant]
     Dosage: 500 MG EVERY 12 HOURS FOR 3 DAYS, UNK
  10. TESSALON PERLES [Concomitant]
     Indication: COUGH
     Dosage: UNK UNK, PRN
     Dates: start: 20100312
  11. MEGACE [Concomitant]
     Dosage: 40 MG, QID
     Route: 048
     Dates: end: 20100316
  12. MEDROXYPROGESTERONE ACETATE [Concomitant]
  13. BACTRIM [SULFAMETHOXAZOLE,TRIMETHOPRIM] [Concomitant]
     Indication: URINARY TRACT INFECTION
     Route: 048
  14. PACKED RED BLOOD CELLS [Concomitant]
     Indication: IRON DEFICIENCY ANAEMIA
     Dosage: 2 U, UNK
     Dates: start: 20100312

REACTIONS (11)
  - Pulmonary embolism [Recovered/Resolved]
  - Deep vein thrombosis [None]
  - Injury [Recovered/Resolved]
  - Pain [None]
  - Pulmonary hypertension [Recovered/Resolved]
  - Dyspnoea [Recovered/Resolved]
  - Vaginal haemorrhage [None]
  - Fatigue [Recovered/Resolved]
  - Left atrial dilatation [None]
  - Uterine leiomyoma [None]
  - Pain [Recovered/Resolved]
